FAERS Safety Report 4369174-5 (Version None)
Quarter: 2004Q2

REPORT INFORMATION
  Report Type: 
  Country: None (occurrence: None)
  Receive Date: 20040528
  Receipt Date: 20040519
  Transmission Date: 20050107
  Serious: Yes (Death, Hospitalization)
  Sender: FDA-Public Use
  Company Number: FR-JNJFOC-20040504420

PATIENT
  Age: 58 Year
  Sex: Male

DRUGS (6)
  1. TRAMADOL HCL [Suspect]
     Indication: PAIN
     Dosage: 300 MG, 1 IN 1 DAY, ORAL
     Route: 048
     Dates: start: 20000414, end: 20000416
  2. ACETAMINOPHEN [Concomitant]
  3. FONZYLANE (BUFLOMEDIL HYDROCHLORIDE) [Concomitant]
  4. FRAXODI (NADROPARIN CALCIUM) [Concomitant]
  5. TERCIAN (CYAMEMAZINE) [Concomitant]
  6. FONZYLANE (BUFLOMEDIL HYDROCHLORIDE) [Concomitant]

REACTIONS (5)
  - EYELID OEDEMA [None]
  - PRURITUS [None]
  - PURPURA [None]
  - RASH VESICULAR [None]
  - VASCULITIS [None]
